FAERS Safety Report 8321710-X (Version None)
Quarter: 2012Q2

REPORT INFORMATION
  Report Type: 
  Country: None (occurrence: None)
  Receive Date: 20120430
  Receipt Date: 20120425
  Transmission Date: 20120825
  Serious: Yes (Hospitalization)
  Sender: FDA-Public Use
  Company Number: FR-PFIZER INC-2012101889

PATIENT
  Age: 91 Year
  Sex: Female

DRUGS (10)
  1. DITROPAN [Concomitant]
     Dosage: 2.5 MG, 1X/DAY
     Route: 048
     Dates: start: 20060101
  2. LEXOMIL [Concomitant]
     Dosage: 3 MG, 1X/DAY
     Route: 048
     Dates: start: 20060101
  3. TANGANIL [Concomitant]
     Dosage: 1 DF, 3X/DAY
     Route: 048
     Dates: start: 20040101
  4. AMLODIPINE BESYLATE [Concomitant]
     Dosage: 5 MG, 1X/DAY
     Route: 048
     Dates: start: 20060101
  5. SINTROM [Concomitant]
     Dosage: 1 MG, 1X/DAY
     Route: 048
     Dates: start: 20040101
  6. ALDACTONE [Suspect]
     Dosage: 25 MG, 3X/WEEK
     Route: 048
     Dates: start: 20040101, end: 20120110
  7. LASIX [Suspect]
     Dosage: 10 MG, 3X/WEEK
     Route: 048
     Dates: start: 20040101, end: 20120110
  8. VALSARTAN [Concomitant]
     Dosage: 80 MG, 1X/DAY
     Route: 048
     Dates: start: 20040101
  9. CORDARONE [Concomitant]
     Dosage: 200 MG, 5X/WEEK
     Route: 048
     Dates: start: 20040101
  10. STABLON [Concomitant]
     Dosage: 1 DF, 2X/DAY
     Route: 048
     Dates: start: 20060101

REACTIONS (2)
  - HYPONATRAEMIA [None]
  - FALL [None]
